FAERS Safety Report 8575764-6 (Version None)
Quarter: 2012Q3

REPORT INFORMATION
  Report Type: 
  Country: None (occurrence: None)
  Receive Date: 20120807
  Receipt Date: 20120801
  Transmission Date: 20120928
  Serious: Yes (Hospitalization)
  Sender: FDA-Public Use
  Company Number: FR-BRISTOL-MYERS SQUIBB COMPANY-16754954

PATIENT
  Age: 49 Year
  Sex: Female
  Weight: 139 kg

DRUGS (5)
  1. INSULATARD NPH HUMAN [Suspect]
     Dosage: EVENING
     Route: 058
  2. GLUCOPHAGE [Suspect]
     Route: 048
     Dates: end: 20120519
  3. MICARDIS [Suspect]
     Route: 048
     Dates: end: 20120519
  4. GLYBURIDE [Suspect]
     Route: 048
     Dates: end: 20120520
  5. ONGLYZA [Suspect]
     Indication: TYPE 2 DIABETES MELLITUS
     Route: 048
     Dates: start: 20110901, end: 20120519

REACTIONS (3)
  - BLOOD GLUCOSE FLUCTUATION [None]
  - ENTEROCOLITIS INFECTIOUS [None]
  - HYPERLIPASAEMIA [None]
